FAERS Safety Report 8076924-3 (Version None)
Quarter: 2012Q1

REPORT INFORMATION
  Report Type: 
  Country: None (occurrence: None)
  Receive Date: 20120127
  Receipt Date: 20120112
  Transmission Date: 20120608
  Serious: No
  Sender: FDA-Public Use
  Company Number: PHHY2011US66149

PATIENT
  Age: 68 Year
  Sex: Female
  Weight: 116.1 kg

DRUGS (15)
  1. TASIGNA [Suspect]
     Dosage: 450 MG DAILY
     Route: 048
     Dates: start: 20110627
  2. MAGNESIUM [Concomitant]
  3. ALDACTONE [Concomitant]
  4. VITAMIN B-12 [Concomitant]
  5. SYNTHROID [Concomitant]
  6. COUMADIN [Concomitant]
  7. TOPROL-XL [Concomitant]
  8. EDECRIN [Concomitant]
  9. LOMOTIL [Concomitant]
  10. CALTRATE +D [Concomitant]
  11. ONDANSETRON HCL [Concomitant]
  12. TASIGNA [Suspect]
     Dosage: 450 MG, DAILY
     Route: 048
  13. PRADAXA [Concomitant]
  14. TASIGNA [Suspect]
     Indication: CHRONIC MYELOID LEUKAEMIA
     Dosage: 300 MG, BID
     Route: 048
     Dates: start: 20110601
  15. LABETALOL HYDROCHLORIDE [Concomitant]

REACTIONS (9)
  - NAUSEA [None]
  - PRURITUS [None]
  - MUSCLE SPASMS [None]
  - DYSPNOEA [None]
  - BACK PAIN [None]
  - FATIGUE [None]
  - RHINITIS [None]
  - VOMITING [None]
  - RASH [None]
